FAERS Safety Report 9416445 (Version 1)
Quarter: 2013Q3

REPORT INFORMATION
  Report Type: Spontaneous
  Country: US (occurrence: US)
  Receive Date: 20130724
  Receipt Date: 20130724
  Transmission Date: 20140515
  Serious: Yes (Other)
  Sender: FDA-Public Use
  Company Number: US-MYLANLABS-2013S1015593

PATIENT
  Age: 15 Year
  Sex: Female
  Weight: 113.4 kg

DRUGS (1)
  1. LEVETIRACETAM TABLETS [Suspect]
     Indication: CONVULSION
     Route: 048
     Dates: start: 201205

REACTIONS (3)
  - Drug effect decreased [Recovered/Resolved]
  - Convulsion [Recovered/Resolved]
  - Drug dose omission [Recovered/Resolved]
